FAERS Safety Report 7804000-0 (Version None)
Quarter: 2011Q4

REPORT INFORMATION
  Report Type: 
  Country: None (occurrence: None)
  Receive Date: 20111010
  Receipt Date: 20110928
  Transmission Date: 20120403
  Serious: Yes (Other)
  Sender: FDA-Public Use
  Company Number: US-JNJFOC-20110911855

PATIENT
  Sex: Male
  Weight: 83.92 kg

DRUGS (3)
  1. REMICADE [Suspect]
     Route: 042
     Dates: start: 20110401
  2. REMICADE [Suspect]
     Indication: COLITIS ULCERATIVE
     Route: 042
  3. GABAPENTIN [Concomitant]
     Indication: INFLAMMATION
     Route: 048
     Dates: start: 20050101

REACTIONS (3)
  - DRUG EFFECT DECREASED [None]
  - HAEMATOCHEZIA [None]
  - GASTROINTESTINAL DISORDER [None]
